FAERS Safety Report 7381426-3 (Version None)
Quarter: 2011Q1

REPORT INFORMATION
  Report Type: 
  Country: None (occurrence: None)
  Receive Date: 20110329
  Receipt Date: 20110324
  Transmission Date: 20110831
  Serious: Yes (Other)
  Sender: FDA-Public Use
  Company Number: PL-ROCHE-767620

PATIENT

DRUGS (4)
  1. RIBAVIRIN [Suspect]
     Indication: HEPATITIS C
     Route: 065
     Dates: start: 20100301
  2. PEGINTERFERON ALFA-2A [Suspect]
     Indication: HEPATITIS C
     Route: 065
     Dates: start: 20100301
  3. ALFAFERONE [Suspect]
     Indication: HEPATITIS C
     Route: 065
  4. INSULIN [Concomitant]
     Indication: DIABETES MELLITUS

REACTIONS (3)
  - HAEMOLYTIC ANAEMIA [None]
  - BLOOD TEST ABNORMAL [None]
  - NEUTROPENIA [None]
